FAERS Safety Report 4908398-2 (Version None)
Quarter: 2006Q1

REPORT INFORMATION
  Report Type: 
  Country: None (occurrence: None)
  Receive Date: 20060210
  Receipt Date: 20030904
  Transmission Date: 20060701
  Serious: No
  Sender: FDA-Public Use
  Company Number: US-GLAXOSMITHKLINE-A0424691A

PATIENT
  Age: 83 Year
  Sex: Female

DRUGS (2)
  1. PAXIL CR [Suspect]
     Indication: PANIC DISORDER
     Dosage: 12.5MG PER DAY
     Route: 048
     Dates: start: 20030301
  2. LOTREL [Concomitant]

REACTIONS (7)
  - ABNORMAL DREAMS [None]
  - ANOREXIA [None]
  - DIARRHOEA [None]
  - FLUSHING [None]
  - INSOMNIA [None]
  - SOMNOLENCE [None]
  - WEIGHT DECREASED [None]
